FAERS Safety Report 7550061-6 (Version None)
Quarter: 2011Q2

REPORT INFORMATION
  Report Type: 
  Country: None (occurrence: None)
  Receive Date: 20110615
  Receipt Date: 20100707
  Transmission Date: 20111010
  Serious: No
  Sender: FDA-Public Use
  Company Number: US-TYCO HEALTHCARE/MALLINCKRODT-T201001604

PATIENT
  Sex: Male

DRUGS (3)
  1. ULTRA-TECHNEKOW [Concomitant]
     Dosage: UNK
     Route: 042
     Dates: start: 20100706, end: 20100706
  2. ULTRATAG [Suspect]
     Indication: RADIOISOTOPE SCAN
     Dosage: UNK
     Dates: start: 20100706, end: 20100706
  3. HEPARIN [Concomitant]

REACTIONS (1)
  - DRUG INEFFECTIVE [None]
